FAERS Safety Report 7158331-0 (Version None)
Quarter: 2010Q4

REPORT INFORMATION
  Report Type: 
  Country: None (occurrence: None)
  Receive Date: 20101214
  Receipt Date: 20091123
  Transmission Date: 20110411
  Serious: No
  Sender: FDA-Public Use
  Company Number: US-PFIZER INC-2009302505

PATIENT
  Sex: Female
  Weight: 79.378 kg

DRUGS (3)
  1. ARTHROTEC [Suspect]
     Indication: JOINT SWELLING
  2. ASCORBIC ACID [Concomitant]
  3. ATENOLOL [Concomitant]
     Indication: HYPERTENSION
     Dosage: 25 MG, UNK

REACTIONS (1)
  - BLOOD POTASSIUM INCREASED [None]
